FAERS Safety Report 5193813-2 (Version None)
Quarter: 2006Q4

REPORT INFORMATION
  Report Type: 
  Country: None (occurrence: None)
  Receive Date: 20061228
  Receipt Date: 20061221
  Transmission Date: 20070319
  Serious: Yes (Other)
  Sender: FDA-Public Use
  Company Number: FI-AVENTIS-200622934GDDC

PATIENT
  Age: 47 Year
  Sex: Female

DRUGS (11)
  1. ARAVA [Suspect]
     Indication: RHEUMATOID ARTHRITIS
     Route: 048
     Dates: start: 20031101, end: 20040201
  2. ENBREL [Suspect]
     Indication: RHEUMATOID ARTHRITIS
     Route: 058
     Dates: start: 20040219, end: 20040701
  3. IMUREL                             /00001501/ [Suspect]
     Indication: RHEUMATOID ARTHRITIS
     Route: 048
     Dates: start: 19960101, end: 20031101
  4. EFEXOR                             /01233802/ [Concomitant]
     Route: 048
  5. PROGYNOVA                          /00045402/ [Concomitant]
     Route: 048
  6. VIOXX [Concomitant]
     Route: 048
  7. PREDNISONE TAB [Concomitant]
     Route: 048
  8. TRIPTYL [Concomitant]
     Route: 048
  9. KLORPROMAN                         /00011902/ [Concomitant]
     Route: 048
  10. XANOR [Concomitant]
     Route: 048
  11. OXEPAM [Concomitant]
     Route: 048

REACTIONS (1)
  - BREAST CANCER [None]
